FAERS Safety Report 9639074 (Version 1)
Quarter: 2013Q4

REPORT INFORMATION
  Report Type: Report from Study
  Country: NZ (occurrence: NZ)
  Receive Date: 20131022
  Receipt Date: 20131022
  Transmission Date: 20140711
  Serious: Yes (Hospitalization)
  Sender: FDA-Public Use
  Company Number: NZ-ABBVIE-13P-118-1159519-00

PATIENT
  Age: 52 Year
  Sex: Female

DRUGS (11)
  1. RITONAVIR [Suspect]
     Indication: CHRONIC HEPATITIS C
     Route: 048
  2. RO 5190591 (HCV PROTEASE INHIBITOR) [Concomitant]
     Indication: CHRONIC HEPATITIS C
     Route: 048
     Dates: start: 20120615
  3. RO 5190591 (HCV PROTEASE INHIBITOR) [Concomitant]
     Indication: HEPATIC CIRRHOSIS
  4. RO 5024048 (HCV POLYMERASE INHIBITOR) [Concomitant]
     Indication: CHRONIC HEPATITIS C
     Route: 048
     Dates: start: 20120615
  5. RO 5024048 (HCV POLYMERASE INHIBITOR) [Concomitant]
     Indication: HEPATIC CIRRHOSIS
  6. INTERFERON ALFA-2A [Concomitant]
     Indication: CHRONIC HEPATITIS C
     Route: 058
     Dates: start: 20120615
  7. INTERFERON ALFA-2A [Concomitant]
     Indication: HEPATIC CIRRHOSIS
  8. RIBAVIRIN [Concomitant]
     Indication: CHRONIC HEPATITIS C
     Route: 048
     Dates: start: 20120615
  9. RIBAVIRIN [Concomitant]
     Indication: HEPATIC CIRRHOSIS
  10. PARACETAMOL [Concomitant]
     Indication: PRODUCT USED FOR UNKNOWN INDICATION
     Dates: start: 20120614
  11. HYDROCORTISONE [Concomitant]
     Indication: PRODUCT USED FOR UNKNOWN INDICATION
     Route: 061
     Dates: start: 20121031

REACTIONS (1)
  - Keratitis bacterial [Recovered/Resolved]
